FAERS Safety Report 15550829 (Version 1)
Quarter: 2018Q4

REPORT INFORMATION
  Report Type: Spontaneous
  Country: US (occurrence: US)
  Receive Date: 20181025
  Receipt Date: 20181025
  Transmission Date: 20190205
  Serious: No
  Sender: FDA-Public Use
  Company Number: None

PATIENT
  Age: 47 Year
  Sex: Female
  Weight: 66.6 kg

DRUGS (11)
  1. DRAMAMINE [Concomitant]
     Active Substance: DIMENHYDRINATE
  2. NEXIUM [Concomitant]
     Active Substance: ESOMEPRAZOLE MAGNESIUM
  3. PEPCID [Concomitant]
     Active Substance: FAMOTIDINE
  4. BENADRYL [Concomitant]
     Active Substance: DIPHENHYDRAMINE HYDROCHLORIDE
  5. ONZESTRA [Concomitant]
  6. FIORICET [Concomitant]
     Active Substance: ACETAMINOPHEN\BUTALBITAL\CAFFEINE
  7. TIZANNADINE [Concomitant]
  8. PERCOCET [Concomitant]
     Active Substance: ACETAMINOPHEN\OXYCODONE HYDROCHLORIDE
  9. MAGNESIUM [Concomitant]
     Active Substance: MAGNESIUM
  10. AIMOVIG [Suspect]
     Active Substance: ERENUMAB-AOOE
     Indication: MIGRAINE
     Dosage: ?          QUANTITY:2 INJECTION(S);OTHER FREQUENCY:ONCE A MONTH;?
     Route: 058
     Dates: start: 20180612
  11. LYRICA [Concomitant]
     Active Substance: PREGABALIN

REACTIONS (9)
  - Constipation [None]
  - Diarrhoea [None]
  - Dyspepsia [None]
  - Drug ineffective [None]
  - Nervousness [None]
  - Nausea [None]
  - Irritability [None]
  - Decreased appetite [None]
  - Psychomotor hyperactivity [None]

NARRATIVE: CASE EVENT DATE: 20180801
